FAERS Safety Report 9158650 (Version 2)
Quarter: 2013Q3

REPORT INFORMATION
  Report Type: Spontaneous
  Country: US (occurrence: US)
  Receive Date: 20130312
  Receipt Date: 20130816
  Transmission Date: 20140515
  Serious: Yes (Hospitalization, Other)
  Sender: FDA-Public Use
  Company Number: US-LUNDBECK-DKLU1084593

PATIENT
  Age: 41 Year
  Sex: Female

DRUGS (2)
  1. SABRIL (TABLET) [Suspect]
     Indication: COMPLEX PARTIAL SEIZURES
     Route: 048
     Dates: start: 20100108
  2. SABRIL (TABLET) [Suspect]
     Dosage: 3 TABLETS IN AM, 2 TABLETS IN PM
     Dates: start: 20130515

REACTIONS (4)
  - Blindness [Not Recovered/Not Resolved]
  - Convulsion [Unknown]
  - Incorrect dose administered [Recovered/Resolved]
  - Drug dose omission [Recovered/Resolved]
